FAERS Safety Report 26151520 (Version 1)
Quarter: 2025Q4

REPORT INFORMATION
  Report Type: Report from Study
  Country: JP (occurrence: JP)
  Receive Date: 20251212
  Receipt Date: 20251212
  Transmission Date: 20260117
  Serious: Yes (Death)
  Sender: ABBVIE
  Company Number: JP-TAKEDA-2025TJP012624

PATIENT
  Sex: Male

DRUGS (1)
  1. LEUPROLIDE ACETATE [Suspect]
     Active Substance: LEUPROLIDE ACETATE
     Indication: Bulbospinal muscular atrophy congenital
     Route: 065

REACTIONS (1)
  - Marasmus [Fatal]
